FAERS Safety Report 7437897-7 (Version None)
Quarter: 2011Q2

REPORT INFORMATION
  Report Type: 
  Country: None (occurrence: None)
  Receive Date: 20110426
  Receipt Date: 20110420
  Transmission Date: 20111010
  Serious: Yes (Hospitalization)
  Sender: FDA-Public Use
  Company Number: B0712553A

PATIENT
  Age: 52 Year
  Sex: Female
  Weight: 59.1 kg

DRUGS (4)
  1. AVANDIA [Suspect]
     Indication: DIABETES MELLITUS
     Dosage: 4MG PER DAY
     Route: 048
     Dates: start: 20060110
  2. AMARYL [Concomitant]
  3. LOTREL [Concomitant]
  4. GLUCOPHAGE [Concomitant]

REACTIONS (7)
  - OESOPHAGEAL ACHALASIA [None]
  - DYSPEPSIA [None]
  - FLUID RETENTION [None]
  - HYPERLIPIDAEMIA [None]
  - CARDIAC MURMUR [None]
  - HYPERTENSION [None]
  - CHEST PAIN [None]
